FAERS Safety Report 21665165 (Version 1)
Quarter: 2022Q4

REPORT INFORMATION
  Report Type: Report from Study
  Country: US (occurrence: US)
  Receive Date: 20221130
  Receipt Date: 20221130
  Transmission Date: 20230113
  Serious: Yes (Other)
  Sender: FDA-Public Use
  Company Number: US-BoehringerIngelheim-2022-BI-205441

PATIENT
  Age: 71 Year
  Sex: Female

DRUGS (7)
  1. OFEV [Suspect]
     Active Substance: NINTEDANIB
     Indication: Product used for unknown indication
     Dates: end: 202211
  2. TYVASO DPI [Suspect]
     Active Substance: TREPROSTINIL
     Indication: Pulmonary arterial hypertension
     Dosage: DRY POWDER
     Route: 055
     Dates: start: 20220807
  3. TYVASO DPI [Suspect]
     Active Substance: TREPROSTINIL
     Dosage: DRY POWDER
     Route: 055
     Dates: start: 202211, end: 202211
  4. TYVASO DPI [Suspect]
     Active Substance: TREPROSTINIL
     Dosage: DRY POWDER
     Route: 055
     Dates: start: 202211
  5. FUROSEMIDE [Concomitant]
     Active Substance: FUROSEMIDE
     Indication: Product used for unknown indication
  6. METOPROLOL [Concomitant]
     Active Substance: METOPROLOL
     Indication: Product used for unknown indication
  7. XARELTO [Concomitant]
     Active Substance: RIVAROXABAN
     Indication: Product used for unknown indication

REACTIONS (5)
  - Atrial fibrillation [Unknown]
  - Dyspnoea [Unknown]
  - Cough [Unknown]
  - Oxygen saturation decreased [Unknown]
  - Retching [Unknown]

NARRATIVE: CASE EVENT DATE: 20220101
